FAERS Safety Report 6394030-0 (Version None)
Quarter: 2009Q4

REPORT INFORMATION
  Report Type: 
  Country: None (occurrence: None)
  Receive Date: 20091008
  Receipt Date: 20090929
  Transmission Date: 20100525
  Serious: Yes (Other)
  Sender: FDA-Public Use
  Company Number: PHHO2009FR11961

PATIENT
  Sex: Female

DRUGS (4)
  1. ZOLEDRONIC ACID [Suspect]
     Indication: BREAST CANCER
     Dosage: EVERY 6 MONTHS
     Route: 042
     Dates: start: 20040823
  2. CGS 20267 T30748+ [Suspect]
     Indication: BREAST CANCER
     Dosage: 1 TAB/DAY
     Route: 048
     Dates: start: 20040823
  3. CALCIUM [Concomitant]
  4. VITAMIN D [Concomitant]

REACTIONS (3)
  - OSTEONECROSIS [None]
  - PAIN IN JAW [None]
  - TOOTH LOSS [None]
